FAERS Safety Report 10011573 (Version 2)
Quarter: 2014Q1

REPORT INFORMATION
  Report Type: Spontaneous
  Country: CA (occurrence: CA)
  Receive Date: 20140314
  Receipt Date: 20140320
  Transmission Date: 20141002
  Serious: Yes (Life-Threatening)
  Sender: FDA-Public Use
  Company Number: CA-MERCK-1403CAN005674

PATIENT
  Age: 75 Year
  Sex: Male
  Weight: 58.5 kg

DRUGS (4)
  1. JANUVIA [Suspect]
     Dosage: 100 MG 1 EVERY 1 DAY
     Route: 048
  2. ATIVAN [Concomitant]
     Route: 065
  3. LOPERAMIDE HYDROCHLORIDE [Concomitant]
     Route: 065
  4. METFORMIN [Concomitant]
     Route: 048

REACTIONS (2)
  - Pancreatic carcinoma [Unknown]
  - Pancreatitis chronic [Unknown]
